FAERS Safety Report 24882730 (Version 3)
Quarter: 2025Q1

REPORT INFORMATION
  Report Type: Spontaneous
  Country: JP (occurrence: JP)
  Receive Date: 20250124
  Receipt Date: 20250320
  Transmission Date: 20250408
  Serious: Yes (Death, Other)
  Sender: EXELIXIS
  Company Number: JP-TAKEDA-2025TJP000407

PATIENT
  Age: 74 Year
  Sex: Male

DRUGS (1)
  1. CABOMETYX [Suspect]
     Active Substance: CABOZANTINIB S-MALATE
     Indication: Renal cell carcinoma
     Dosage: 40 MG, QOD
     Route: 048
     Dates: end: 20250115

REACTIONS (3)
  - Pneumatosis intestinalis [Fatal]
  - Renal cell carcinoma [Fatal]
  - Proteinuria [Recovered/Resolved]

NARRATIVE: CASE EVENT DATE: 20241218
